FAERS Safety Report 5350964-7 (Version None)
Quarter: 2007Q2

REPORT INFORMATION
  Report Type: 
  Country: None (occurrence: None)
  Receive Date: 20070608
  Receipt Date: 20070605
  Transmission Date: 20071010
  Serious: Yes (Other)
  Sender: FDA-Public Use
  Company Number: JP-ASTRAZENECA-2007AP02051

PATIENT
  Age: 546 Month
  Sex: Female
  Weight: 63 kg

DRUGS (3)
  1. ZOLADEX [Suspect]
     Indication: BREAST CANCER
     Route: 058
     Dates: start: 20060718, end: 20061010
  2. EMALOOK [Suspect]
     Indication: BREAST CANCER
     Route: 048
     Dates: start: 20060711, end: 20070115
  3. RADIOTHERAPY [Concomitant]
     Indication: BREAST CANCER
     Dosage: 60 GY TO LEFT BREAST
     Dates: start: 20060724

REACTIONS (1)
  - CARPAL TUNNEL SYNDROME [None]
